FAERS Safety Report 21994503 (Version 2)
Quarter: 2023Q1

REPORT INFORMATION
  Report Type: Spontaneous
  Country: CA (occurrence: CA)
  Receive Date: 20230215
  Receipt Date: 20230320
  Transmission Date: 20230417
  Serious: Yes (Other)
  Sender: FDA-Public Use
  Company Number: CA-GLAXOSMITHKLINE-CA2023AMR023106

PATIENT

DRUGS (2)
  1. ALBUTEROL SULFATE [Suspect]
     Active Substance: ALBUTEROL SULFATE
     Indication: Cough
     Dosage: 1 PUFF(S), Z, 3 OR 4 TIMES A DAY
     Route: 055
     Dates: start: 2021
  2. ALBUTEROL SULFATE [Suspect]
     Active Substance: ALBUTEROL SULFATE
     Indication: Dyspnoea

REACTIONS (13)
  - Testis cancer [Unknown]
  - Angina pectoris [Unknown]
  - Sensation of foreign body [Unknown]
  - Aphonia [Unknown]
  - Swelling [Unknown]
  - Dry throat [Unknown]
  - Infection [Unknown]
  - Cardiac disorder [Unknown]
  - Lung disorder [Unknown]
  - Back pain [Unknown]
  - Neck pain [Unknown]
  - Product prescribing issue [Unknown]
  - Drug ineffective for unapproved indication [Unknown]

NARRATIVE: CASE EVENT DATE: 20210101
